FAERS Safety Report 7821949 (Version 3)
Quarter: 2013Q3

REPORT INFORMATION
  Report Type: Spontaneous
  Country: US (occurrence: US)
  Receive Date: 20110222
  Receipt Date: 20130723
  Transmission Date: 20140515
  Serious: Yes (Hospitalization, Other)
  Sender: FDA-Public Use
  Company Number: US-JNJFOC-20101207701

PATIENT
  Age: 72 Year
  Sex: Female
  Weight: 81.65 kg

DRUGS (18)
  1. REMICADE [Suspect]
     Indication: RHEUMATOID ARTHRITIS
     Route: 042
  2. REMICADE [Suspect]
     Indication: RHEUMATOID ARTHRITIS
     Dosage: THIRD INFUSION
     Route: 042
     Dates: start: 20110113
  3. REMICADE [Suspect]
     Indication: RHEUMATOID ARTHRITIS
     Route: 042
     Dates: start: 20101120
  4. REMICADE [Suspect]
     Indication: RHEUMATOID ARTHRITIS
     Route: 042
     Dates: start: 20110228, end: 20110228
  5. PREDNISONE [Concomitant]
     Indication: RHEUMATOID ARTHRITIS
     Route: 048
     Dates: start: 2009
  6. HUMALOG [Concomitant]
     Indication: TYPE 2 DIABETES MELLITUS
     Dosage: 4 UNITS 3 TIMES A DAY WITH MEALS AND SLIDING SCALE
     Route: 058
     Dates: start: 2009
  7. LANTUS [Concomitant]
     Indication: TYPE 2 DIABETES MELLITUS
     Dosage: 24 UNITS AT BEDTIME
     Route: 058
     Dates: start: 2009
  8. ASPIRIN [Concomitant]
  9. LEVEMIR [Concomitant]
  10. XANAX [Concomitant]
  11. VITAMIN D [Concomitant]
  12. DIOVAN [Concomitant]
  13. BYSTOLIC [Concomitant]
  14. ACT 3 [Concomitant]
  15. TEKTURNA [Concomitant]
  16. LYRICA [Concomitant]
  17. ALL OTHER THERAPEUTIC PRODUCTS [Concomitant]
  18. LIVALO [Concomitant]

REACTIONS (7)
  - Restrictive pulmonary disease [Unknown]
  - Hypertension [Not Recovered/Not Resolved]
  - Dyspnoea [Recovered/Resolved]
  - Pharyngeal disorder [Recovered/Resolved]
  - Infusion related reaction [Recovered/Resolved]
  - Nasal congestion [Recovered/Resolved]
  - Pruritus [Recovered/Resolved]
